FAERS Safety Report 11037335 (Version 1)
Quarter: 2015Q2

REPORT INFORMATION
  Report Type: Spontaneous
  Country: US (occurrence: US)
  Receive Date: 20150416
  Receipt Date: 20150416
  Transmission Date: 20150821
  Serious: No
  Sender: FDA-Public Use
  Company Number: US-PFIZER INC-2015127029

PATIENT
  Age: 61 Year
  Sex: Female
  Weight: 117 kg

DRUGS (2)
  1. NEURONTIN [Suspect]
     Active Substance: GABAPENTIN
     Indication: SEIZURE
     Dosage: 300 MG, DAILY
     Route: 048
     Dates: start: 2005
  2. NEURONTIN [Suspect]
     Active Substance: GABAPENTIN
     Dosage: 600 MG, DAILY
     Route: 048

REACTIONS (6)
  - Activities of daily living impaired [Unknown]
  - Bedridden [Unknown]
  - Drug withdrawal syndrome [Unknown]
  - Tremor [Unknown]
  - Nervousness [Unknown]
  - Restlessness [Unknown]
